FAERS Safety Report 7728378-1 (Version None)
Quarter: 2011Q3

REPORT INFORMATION
  Report Type: 
  Country: None (occurrence: None)
  Receive Date: 20110905
  Receipt Date: 20110825
  Transmission Date: 20111222
  Serious: Yes (Hospitalization)
  Sender: FDA-Public Use
  Company Number: US-AMGEN-USASP2011043748

PATIENT
  Age: 83 Year
  Sex: Female

DRUGS (1)
  1. ENBREL [Suspect]
     Indication: RHEUMATOID ARTHRITIS
     Dosage: 50 MG, QWK
     Dates: start: 20090427

REACTIONS (6)
  - LACERATION [None]
  - CONTUSION [None]
  - PAIN IN EXTREMITY [None]
  - NODULE [None]
  - FALL [None]
  - SKIN DISCOLOURATION [None]
